FAERS Safety Report 8281780-4 (Version None)
Quarter: 2012Q2

REPORT INFORMATION
  Report Type: 
  Country: None (occurrence: None)
  Receive Date: 20120413
  Receipt Date: 20120404
  Transmission Date: 20120825
  Serious: Yes (Other)
  Sender: FDA-Public Use
  Company Number: FR-JNJFOC-20120204728

PATIENT
  Sex: Female
  Weight: 78 kg

DRUGS (7)
  1. INNOHEP [Concomitant]
  2. ALENDRONIC ACID [Concomitant]
  3. CRESTOR [Concomitant]
  4. XARELTO [Suspect]
     Indication: KNEE ARTHROPLASTY
     Route: 048
     Dates: start: 20120120, end: 20120130
  5. INNOHEP [Concomitant]
     Indication: SURGERY
     Dates: start: 20120119, end: 20120119
  6. ANTACID [Concomitant]
  7. ZOLPIDEM [Concomitant]

REACTIONS (1)
  - VENOUS THROMBOSIS LIMB [None]
